FAERS Safety Report 19749018 (Version 1)
Quarter: 2021Q3

REPORT INFORMATION
  Report Type: Spontaneous
  Country: US (occurrence: US)
  Receive Date: 20210825
  Receipt Date: 20210825
  Transmission Date: 20211014
  Serious: Yes (Death)
  Sender: FDA-Public Use
  Company Number: None

PATIENT
  Age: 77 Year
  Sex: Female
  Weight: 80 kg

DRUGS (7)
  1. ALLOPURINOL 100MG [Concomitant]
     Active Substance: ALLOPURINOL
  2. VORICONAZOLE 50MG [Concomitant]
  3. LACTULOSE 10GM [Concomitant]
  4. DAURISMO [Suspect]
     Active Substance: GLASDEGIB
     Indication: ACUTE MYELOID LEUKAEMIA
     Route: 048
     Dates: start: 20210716, end: 20210825
  5. LEVOTHYROXINE 100MCG [Concomitant]
     Active Substance: LEVOTHYROXINE
  6. ACYCLOVIR 400MG [Concomitant]
     Active Substance: ACYCLOVIR
  7. ARA?C [Concomitant]
     Active Substance: CYTARABINE

REACTIONS (1)
  - Death [None]

NARRATIVE: CASE EVENT DATE: 20210825
